FAERS Safety Report 5762961-8 (Version None)
Quarter: 2008Q2

REPORT INFORMATION
  Report Type: 
  Country: None (occurrence: None)
  Receive Date: 20080609
  Receipt Date: 20080528
  Transmission Date: 20081010
  Serious: Yes (Other)
  Sender: FDA-Public Use
  Company Number: DE-ROCHE-567461

PATIENT
  Sex: Male

DRUGS (1)
  1. XELODA [Suspect]
     Route: 065

REACTIONS (1)
  - GASTROINTESTINAL NECROSIS [None]
